FAERS Safety Report 5218113-3 (Version None)
Quarter: 2007Q1

REPORT INFORMATION
  Report Type: 
  Country: None (occurrence: None)
  Receive Date: 20061130
  Receipt Date: 20060907
  Transmission Date: 20070707
  Serious: Yes (Other)
  Sender: FDA-Public Use
  Company Number: US200609001890

PATIENT
  Age: 29 Year
  Sex: Male

DRUGS (1)
  1. ZYPREXA [Suspect]
     Dates: start: 20040101

REACTIONS (5)
  - BLEPHAROSPASM [None]
  - CONVULSION [None]
  - MUSCLE TWITCHING [None]
  - TORTICOLLIS [None]
  - TREMOR [None]
